FAERS Safety Report 7118247-2 (Version None)
Quarter: 2010Q4

REPORT INFORMATION
  Report Type: 
  Country: None (occurrence: None)
  Receive Date: 20101123
  Receipt Date: 20101117
  Transmission Date: 20110411
  Serious: Yes (Life-Threatening, Hospitalization)
  Sender: FDA-Public Use
  Company Number: US-BAYER-201041844NA

PATIENT
  Age: 58 Year
  Sex: Female
  Weight: 68 kg

DRUGS (8)
  1. SORAFENIB [Suspect]
     Indication: RENAL CANCER
     Dosage: TOTAL DAILY DOSE: 400 MG  UNIT DOSE: 200 MG
     Route: 048
     Dates: start: 20100916, end: 20101110
  2. RAD 001 / EVEROLIMUS [Suspect]
     Indication: RENAL CANCER
     Dosage: CYCLE 2
     Route: 048
     Dates: start: 20100916, end: 20101110
  3. GLYBURIDE [Concomitant]
     Indication: DIABETES MELLITUS
     Route: 048
     Dates: start: 20090101
  4. OPNGLYZA [Concomitant]
     Indication: DIABETES MELLITUS
     Route: 048
     Dates: start: 20100101
  5. HYDROCHLOROTHIAZIDE [Concomitant]
     Indication: HYPERTENSION
     Route: 048
     Dates: start: 20100101
  6. HYDROCODONE [Concomitant]
     Indication: FLANK PAIN
     Dosage: 7.5/500 MG Q 6 HRS
     Dates: start: 20100101
  7. ALENDRONATE SODIUM [Concomitant]
     Indication: OSTEOPENIA
     Route: 048
     Dates: start: 20050101
  8. LIPITOR [Concomitant]
     Indication: BLOOD CHOLESTEROL INCREASED
     Route: 048

REACTIONS (4)
  - ADRENAL INSUFFICIENCY [None]
  - CARDIAC ARREST [None]
  - HAEMATOCHEZIA [None]
  - SHOCK [None]
